FAERS Safety Report 4978272-4 (Version None)
Quarter: 2006Q2

REPORT INFORMATION
  Report Type: 
  Country: None (occurrence: None)
  Receive Date: 20060417
  Receipt Date: 20060407
  Transmission Date: 20061013
  Serious: Yes (Death, Life-Threatening, Other)
  Sender: FDA-Public Use
  Company Number: 2006-04-0307

PATIENT
  Sex: Female

DRUGS (2)
  1. INTEGRILIN [Suspect]
     Dosage: INTRAVENOUS
     Route: 042
     Dates: start: 20060404
  2. ANGIOMAX [Concomitant]

REACTIONS (6)
  - BLOOD PRESSURE INCREASED [None]
  - BRADYCARDIA [None]
  - CARDIAC PROCEDURE COMPLICATION [None]
  - CIRCULATORY COLLAPSE [None]
  - HEART RATE INCREASED [None]
  - PROCEDURAL HYPOTENSION [None]
